FAERS Safety Report 7033417-X (Version None)
Quarter: 2010Q4

REPORT INFORMATION
  Report Type: 
  Country: None (occurrence: None)
  Receive Date: 20101007
  Receipt Date: 20100930
  Transmission Date: 20110411
  Serious: Yes (Other)
  Sender: FDA-Public Use
  Company Number: BR-PFIZER INC-2010115448

PATIENT
  Age: 64 Year
  Sex: Female
  Weight: 72 kg

DRUGS (1)
  1. CHAMPIX [Suspect]
     Indication: TOBACCO USER
     Dosage: UNK
     Route: 048
     Dates: start: 20100820, end: 20100901

REACTIONS (16)
  - BLOOD PRESSURE INCREASED [None]
  - BLOOD URINE PRESENT [None]
  - COUGH [None]
  - CYSTITIS [None]
  - DEPRESSION [None]
  - FEELING OF DESPAIR [None]
  - GLOSSITIS [None]
  - HYPERSENSITIVITY [None]
  - LARYNGITIS [None]
  - MOUTH HAEMORRHAGE [None]
  - OESOPHAGEAL PAIN [None]
  - PANIC DISORDER [None]
  - PHARYNGITIS [None]
  - POLLAKIURIA [None]
  - PYURIA [None]
  - SUICIDAL IDEATION [None]
